FAERS Safety Report 8799102 (Version 1)
Quarter: 2012Q4

REPORT INFORMATION
  Report Type: Spontaneous
  Country: US (occurrence: None)
  Receive Date: 20120918
  Receipt Date: 20120918
  Transmission Date: 20130627
  Serious: Yes (Hospitalization)
  Sender: FDA-Public Use
  Company Number: None

PATIENT
  Age: 66 Year
  Sex: Male

DRUGS (1)
  1. TARCEVA [Suspect]
     Indication: CANCER
     Route: 048
     Dates: start: 20120823, end: 20120915

REACTIONS (4)
  - Diarrhoea [None]
  - Dehydration [None]
  - Loss of consciousness [None]
  - Rash [None]
